FAERS Safety Report 6312804-9 (Version None)
Quarter: 2009Q3

REPORT INFORMATION
  Report Type: 
  Country: None (occurrence: None)
  Receive Date: 20090817
  Receipt Date: 20090817
  Transmission Date: 20100115
  Serious: No
  Sender: FDA-Public Use
  Company Number: None

PATIENT
  Age: 54 Year
  Sex: Female
  Weight: 56.246 kg

DRUGS (1)
  1. ZICAM COLD REMEDY NASAL SPRAY [Suspect]
     Indication: NASOPHARYNGITIS
     Dosage: 2 OR 3 TIMES
     Dates: start: 20080401, end: 20080401

REACTIONS (2)
  - AGEUSIA [None]
  - ANOSMIA [None]
